FAERS Safety Report 7106259-4 (Version None)
Quarter: 2010Q4

REPORT INFORMATION
  Report Type: 
  Country: None (occurrence: None)
  Receive Date: 20101116
  Receipt Date: 20101108
  Transmission Date: 20110411
  Serious: No
  Sender: FDA-Public Use
  Company Number: US-CEPHALON-2010005835

PATIENT
  Age: 7 Year
  Sex: Male
  Weight: 23 kg

DRUGS (1)
  1. ACTIQ [Suspect]

REACTIONS (1)
  - ACCIDENTAL EXPOSURE [None]
